FAERS Safety Report 7912125-4 (Version None)
Quarter: 2011Q4

REPORT INFORMATION
  Report Type: 
  Country: None (occurrence: None)
  Receive Date: 20111114
  Receipt Date: 20100813
  Transmission Date: 20120403
  Serious: No
  Sender: FDA-Public Use
  Company Number: US-BAYER-201033036NA

PATIENT
  Sex: Female

DRUGS (1)
  1. CLIMARA [Suspect]
     Indication: HYSTERECTOMY
     Dosage: DAILY DOSE .025 MG
     Route: 062
     Dates: start: 20000101

REACTIONS (2)
  - HOT FLUSH [None]
  - PRODUCT ADHESION ISSUE [None]
